FAERS Safety Report 21632207 (Version 1)
Quarter: 2022Q4

REPORT INFORMATION
  Report Type: Spontaneous
  Country: CN (occurrence: CN)
  Receive Date: 20221123
  Receipt Date: 20221123
  Transmission Date: 20230113
  Serious: Yes (Other)
  Sender: FDA-Public Use
  Company Number: CN-SUN PHARMACEUTICAL INDUSTRIES LTD-2022R1-365064

PATIENT
  Age: 74 Year
  Sex: Male

DRUGS (3)
  1. CARBOPLATIN [Suspect]
     Active Substance: CARBOPLATIN
     Indication: Squamous cell carcinoma of lung
     Dosage: 200 MILLIGRAM/SQ. METER FIVE CYCLES
     Route: 065
     Dates: start: 201411, end: 201503
  2. CISPLATIN [Suspect]
     Active Substance: CISPLATIN
     Indication: Squamous cell carcinoma of lung
     Dosage: 75 MILLIGRAM/SQ. METER FIVE CYCLES
     Route: 065
     Dates: start: 201411, end: 201503
  3. ETOPOSIDE [Suspect]
     Active Substance: ETOPOSIDE
     Indication: Squamous cell carcinoma of lung
     Dosage: 120 MILLIGRAM/SQ. METER FIVE CYCLES
     Route: 065
     Dates: start: 201411, end: 201503

REACTIONS (1)
  - Neoplasm progression [Unknown]
